FAERS Safety Report 19507590 (Version 1)
Quarter: 2021Q3

REPORT INFORMATION
  Report Type: Spontaneous
  Country: AU (occurrence: AU)
  Receive Date: 20210708
  Receipt Date: 20210708
  Transmission Date: 20211014
  Serious: Yes (Other)
  Sender: FDA-Public Use
  Company Number: AU-MYLANLABS-2021M1039071

PATIENT
  Age: 75 Year
  Sex: Female

DRUGS (1)
  1. CLOZARIL [Suspect]
     Active Substance: CLOZAPINE
     Indication: SCHIZOPHRENIA
     Dosage: 425 MILLIGRAM
     Route: 048
     Dates: start: 20210510

REACTIONS (1)
  - Troponin increased [Not Recovered/Not Resolved]

NARRATIVE: CASE EVENT DATE: 20210614
